FAERS Safety Report 9230326 (Version 1)
Quarter: 2013Q1

REPORT INFORMATION
  Report Type: Spontaneous
  Country: US (occurrence: None)
  Receive Date: 20121026
  Receipt Date: 20121026
  Transmission Date: 20140127
  Serious: Yes (Other)
  Sender: FDA-Public Use
  Company Number: 1208737

PATIENT
  Age: 68 Year
  Sex: Female
  Weight: 82 kg

DRUGS (3)
  1. BUPIVACAINE HYDROCHLORIDE [Suspect]
     Dosage: NOT APPLICABLE, NOT APPLICABLE, NOT?UNKNOWN
  2. ALDACTONE [Concomitant]
  3. ATENOLOL [Concomitant]

REACTIONS (3)
  - Drug dispensing error [None]
  - Wrong drug administered [None]
  - Product label issue [None]
